FAERS Safety Report 7796572-X (Version None)
Quarter: 2011Q4

REPORT INFORMATION
  Report Type: 
  Country: None (occurrence: None)
  Receive Date: 20111005
  Receipt Date: 20110929
  Transmission Date: 20120403
  Serious: Yes (Other)
  Sender: FDA-Public Use
  Company Number: PE-PFIZER INC-2011233967

PATIENT
  Age: 74 Year
  Sex: Female

DRUGS (1)
  1. XALATAN [Suspect]
     Indication: GLAUCOMA
     Dosage: 0.06 MG, 1X/DAY
     Route: 047
     Dates: start: 20110301, end: 20110701

REACTIONS (2)
  - EYE DISORDER [None]
  - EYE INFLAMMATION [None]
